FAERS Safety Report 19816208 (Version 1)
Quarter: 2021Q3

REPORT INFORMATION
  Report Type: Report from Study
  Country: US (occurrence: US)
  Receive Date: 20210910
  Receipt Date: 20210910
  Transmission Date: 20211014
  Serious: Yes (Other)
  Sender: FDA-Public Use
  Company Number: US-TAKEDA-2021TUS055115

PATIENT
  Sex: Male
  Weight: 93 kg

DRUGS (11)
  1. DIPHENHYDRAMINE. [Concomitant]
     Active Substance: DIPHENHYDRAMINE
  2. PANTOPRAZOLE SODIUM. [Concomitant]
     Active Substance: PANTOPRAZOLE SODIUM
  3. VITAMIN C [Concomitant]
     Active Substance: ASCORBIC ACID
  4. EPINEPHRINE. [Concomitant]
     Active Substance: EPINEPHRINE
  5. VALSARTAN. [Concomitant]
     Active Substance: VALSARTAN
  6. ACETAMINOPHEN. [Concomitant]
     Active Substance: ACETAMINOPHEN
     Indication: CHRONIC INFLAMMATORY DEMYELINATING POLYRADICULONEUROPATHY
     Dosage: 37 GRAM, Q4WEEKS
     Route: 042
     Dates: start: 20210818
  7. VITAMIN D3 [Concomitant]
     Active Substance: CHOLECALCIFEROL
  8. SODIUM CHLORIDE. [Concomitant]
     Active Substance: SODIUM CHLORIDE
  9. HUMAN NORMAL IMMUNOGLOBULIN; LIQUID [Suspect]
     Active Substance: HUMAN IMMUNOGLOBULIN G
     Indication: CHRONIC INFLAMMATORY DEMYELINATING POLYRADICULONEUROPATHY
     Dosage: 37 GRAM, Q4WEEKS
     Route: 042
     Dates: start: 20210818
  10. HEPARIN [Concomitant]
     Active Substance: HEPARIN SODIUM
  11. ACETYL L?CARNITINE [Concomitant]
     Active Substance: ACETYLCARNITINE

REACTIONS (1)
  - Lymphoma [Unknown]
